FAERS Safety Report 5774030-1 (Version None)
Quarter: 2008Q2

REPORT INFORMATION
  Report Type: 
  Country: None (occurrence: None)
  Receive Date: 20080616
  Receipt Date: 20080603
  Transmission Date: 20081010
  Serious: Yes (Hospitalization)
  Sender: FDA-Public Use
  Company Number: AR-ROCHE-568619

PATIENT
  Sex: Female
  Weight: 55 kg

DRUGS (1)
  1. PEG-INTERFERON A-2A (RO 25-8310) [Suspect]
     Route: 042
     Dates: start: 20070423, end: 20071115

REACTIONS (1)
  - APPENDICITIS [None]
